FAERS Safety Report 18229072 (Version 17)
Quarter: 2022Q2

REPORT INFORMATION
  Report Type: Report from Study
  Country: PA (occurrence: PA)
  Receive Date: 20200903
  Receipt Date: 20220523
  Transmission Date: 20220721
  Serious: Yes (Other)
  Sender: FDA-Public Use
  Company Number: NVSC2020PA224415

PATIENT
  Age: 76 Year
  Sex: Female

DRUGS (10)
  1. KISQALI [Suspect]
     Active Substance: RIBOCICLIB
     Indication: Breast cancer
     Dosage: 400 MG, QD
     Route: 048
     Dates: start: 20200808
  2. KISQALI [Suspect]
     Active Substance: RIBOCICLIB
     Indication: Metastases to lung
     Dosage: 40 MG, QD (REDUCED TO 2 TABS FROM 30 OCT)
     Route: 048
  3. KISQALI [Suspect]
     Active Substance: RIBOCICLIB
     Indication: Breast cancer metastatic
     Dosage: 400 MG, QD
     Route: 048
  4. KISQALI [Suspect]
     Active Substance: RIBOCICLIB
     Dosage: 400 MG, QD
     Route: 048
  5. KISQALI [Suspect]
     Active Substance: RIBOCICLIB
     Dosage: 400 MG, QD
     Route: 048
  6. KISQALI [Suspect]
     Active Substance: RIBOCICLIB
     Dosage: 400 MG, QD
     Route: 048
     Dates: start: 2020
  7. ANASTROZOLE [Suspect]
     Active Substance: ANASTROZOLE
     Indication: Breast cancer
     Dosage: 1 MG, QD (1 TABLET)
     Route: 048
     Dates: start: 20200808
  8. WARFARIN [Concomitant]
     Active Substance: WARFARIN
     Indication: Thrombosis
     Dosage: UNK
     Route: 065
  9. OMEPRAZOLE [Concomitant]
     Active Substance: OMEPRAZOLE
     Indication: Product used for unknown indication
     Dosage: 20 MG,(1 TABLET IN THE MORNING AND 1 IN THE EVENING)
     Route: 048
     Dates: start: 20200808
  10. ARIMIDEX [Concomitant]
     Active Substance: ANASTROZOLE
     Indication: Product used for unknown indication
     Dosage: 1 MG
     Route: 065

REACTIONS (41)
  - COVID-19 [Recovered/Resolved]
  - Malaise [Unknown]
  - Diarrhoea [Unknown]
  - Oropharyngeal pain [Unknown]
  - Oxygen saturation decreased [Unknown]
  - Pyrexia [Unknown]
  - COVID-19 [Unknown]
  - Thrombosis [Unknown]
  - Fall [Recovered/Resolved]
  - Feeling abnormal [Unknown]
  - Skin abrasion [Recovered/Resolved]
  - Peripheral swelling [Recovered/Resolved]
  - Blood triglycerides increased [Unknown]
  - Decreased appetite [Unknown]
  - Haemoglobin decreased [Unknown]
  - Mood altered [Unknown]
  - Chest discomfort [Unknown]
  - Rhinorrhoea [Unknown]
  - Abdominal pain upper [Unknown]
  - Abdominal pain [Unknown]
  - Skin discolouration [Unknown]
  - Scab [Unknown]
  - Abdominal discomfort [Unknown]
  - Decreased immune responsiveness [Unknown]
  - Impaired healing [Unknown]
  - Depression [Unknown]
  - Hunger [Unknown]
  - Discomfort [Recovering/Resolving]
  - Pruritus [Unknown]
  - Ulcer [Recovering/Resolving]
  - Eating disorder [Unknown]
  - Inflammation [Unknown]
  - Inappropriate schedule of product administration [Unknown]
  - Off label use [Unknown]
  - Nasopharyngitis [Unknown]
  - Asthenia [Unknown]
  - Rash [Recovering/Resolving]
  - Vomiting [Unknown]
  - Headache [Unknown]
  - Dysgeusia [Unknown]
  - Ear infection [Unknown]

NARRATIVE: CASE EVENT DATE: 20200902
